FAERS Safety Report 21415460 (Version 1)
Quarter: 2022Q4

REPORT INFORMATION
  Report Type: Spontaneous
  Country: CN (occurrence: CN)
  Receive Date: 20221006
  Receipt Date: 20221006
  Transmission Date: 20230113
  Serious: Yes (Other)
  Sender: FDA-Public Use
  Company Number: None

PATIENT
  Age: 57 Year
  Sex: Female
  Weight: 60 kg

DRUGS (6)
  1. CYCLOPHOSPHAMIDE [Suspect]
     Active Substance: CYCLOPHOSPHAMIDE
     Indication: Breast cancer female
     Dosage: 1000 MG, QD (DILUTED WITH 0.9% SODIUM CHLORIDE 50ML) (START TIME:09:44 AM)
     Route: 041
     Dates: start: 20220906, end: 20220906
  2. SODIUM CHLORIDE [Suspect]
     Active Substance: SODIUM CHLORIDE
     Indication: Medication dilution
     Dosage: 50 ML, QD INJECTION (DILUTED WITH CYCLOPHOSPHAMIDE 1000 MG) (START TIME:09:44 AM)
     Route: 041
     Dates: start: 20220906, end: 20220906
  3. SODIUM CHLORIDE [Suspect]
     Active Substance: SODIUM CHLORIDE
     Dosage: 100 ML, QD INJECTION (DILUTED WITH EPIRUBICIN HYDROCHLORIDE 70 MG) (STAT TIME:10:04 AM)
     Route: 041
     Dates: start: 20220906, end: 20220906
  4. SODIUM CHLORIDE [Suspect]
     Active Substance: SODIUM CHLORIDE
     Dosage: 100 ML, QD INJECTION (DILUTED WITH EPIRUBICIN HYDROCHLORIDE 80 MG) (START TIME: 09:15 HRS)
     Route: 041
     Dates: start: 20220907, end: 20220907
  5. EPIRUBICIN HYDROCHLORIDE [Suspect]
     Active Substance: EPIRUBICIN HYDROCHLORIDE
     Indication: Breast cancer female
     Dosage: 70 MG, QD (DILUTED WITH 0.9% SODIUM CHLORIDE 100ML) (START TIME:10:04 AM)
     Route: 041
     Dates: start: 20220906, end: 20220906
  6. EPIRUBICIN HYDROCHLORIDE [Suspect]
     Active Substance: EPIRUBICIN HYDROCHLORIDE
     Dosage: 80 MG, QD (DILUTED WITH 0.9% SODIUM CHLORIDE 100ML) (START TIME: 09:15 HRS)
     Route: 041
     Dates: start: 20220907, end: 20220907

REACTIONS (2)
  - Neutrophil count decreased [Recovered/Resolved]
  - White blood cell count decreased [Recovered/Resolved]

NARRATIVE: CASE EVENT DATE: 20220917
